FAERS Safety Report 7791640-0 (Version None)
Quarter: 2011Q4

REPORT INFORMATION
  Report Type: 
  Country: None (occurrence: None)
  Receive Date: 20111003
  Receipt Date: 20110919
  Transmission Date: 20120403
  Serious: Yes (Hospitalization, Other)
  Sender: FDA-Public Use
  Company Number: DE-ELI_LILLY_AND_COMPANY-DE201109004741

PATIENT
  Age: 73 Year
  Sex: Female

DRUGS (5)
  1. MAGNESIUM [Concomitant]
  2. IRON [Concomitant]
  3. FORTEO [Suspect]
     Dosage: UNK, QD
     Route: 058
     Dates: start: 20110601, end: 20110801
  4. CALCIUM +VIT D [Concomitant]
  5. FORTEO [Suspect]
     Indication: OSTEOPOROSIS
     Dosage: UNK, QD
     Route: 058
     Dates: start: 20100621, end: 20110401

REACTIONS (2)
  - FALL [None]
  - FEMORAL NECK FRACTURE [None]
